FAERS Safety Report 13903999 (Version 1)
Quarter: 2017Q3

REPORT INFORMATION
  Report Type: Spontaneous
  Country: US (occurrence: US)
  Receive Date: 20170824
  Receipt Date: 20170824
  Transmission Date: 20171127
  Serious: Yes (Other)
  Sender: FDA-Public Use
  Company Number: US-UNICHEM LABORATORIES LIMITED-UCM201708-000217

PATIENT
  Age: 16 Year
  Sex: Male

DRUGS (5)
  1. PAXIL [Concomitant]
     Active Substance: PAROXETINE HYDROCHLORIDE
  2. SEROQUEL [Concomitant]
     Active Substance: QUETIAPINE FUMARATE
  3. LAMOTRIGINE. [Suspect]
     Active Substance: LAMOTRIGINE
     Dosage: LAMICTAL? (LAMOTRIGINE) 300 MG TWICE DAILY
  4. LAMOTRIGINE. [Suspect]
     Active Substance: LAMOTRIGINE
  5. OXCARBAZEPINE. [Concomitant]
     Active Substance: OXCARBAZEPINE

REACTIONS (9)
  - Somnolence [Unknown]
  - Dysarthria [Unknown]
  - Medication error [Unknown]
  - Slow response to stimuli [Unknown]
  - Eye movement disorder [Unknown]
  - Nystagmus [Unknown]
  - Lethargy [Unknown]
  - Overdose [Unknown]
  - Gaze palsy [Unknown]
